FAERS Safety Report 10639637 (Version 1)
Quarter: 2014Q4

REPORT INFORMATION
  Report Type: Spontaneous
  Country: US (occurrence: None)
  Receive Date: 20141205
  Receipt Date: 20141205
  Transmission Date: 20150529
  Serious: Yes (Disabling)
  Sender: FDA-Public Use
  Company Number: None

PATIENT
  Age: 38 Year
  Sex: Female
  Weight: 52.62 kg

DRUGS (1)
  1. CEPHALEXIN. [Suspect]
     Active Substance: CEPHALEXIN
     Indication: MASTITIS
     Dosage: 1 PILL, FOUR TIMES DAILY, TAKEN BY MOUTH
     Route: 048
     Dates: start: 20141118, end: 20141124

REACTIONS (1)
  - Clostridium test positive [None]

NARRATIVE: CASE EVENT DATE: 20141123
